FAERS Safety Report 19502034 (Version 1)
Quarter: 2021Q3

REPORT INFORMATION
  Report Type: Spontaneous
  Country: US (occurrence: US)
  Receive Date: 20210706
  Receipt Date: 20210706
  Transmission Date: 20211014
  Serious: Yes (Other)
  Sender: FDA-Public Use
  Company Number: None

PATIENT
  Age: 52 Year
  Sex: Female

DRUGS (1)
  1. REVLIMID [Suspect]
     Active Substance: LENALIDOMIDE
     Indication: PLASMA CELL MYELOMA
     Route: 048
     Dates: start: 20181008, end: 20210609

REACTIONS (5)
  - Burning sensation [None]
  - Fatigue [None]
  - Back pain [None]
  - Dry skin [None]
  - Neuropathy peripheral [None]

NARRATIVE: CASE EVENT DATE: 20210609
